FAERS Safety Report 5777028-2 (Version None)
Quarter: 2008Q2

REPORT INFORMATION
  Report Type: 
  Country: None (occurrence: None)
  Receive Date: 20080601
  Receipt Date: 20080121
  Transmission Date: 20081010
  Serious: No
  Sender: FDA-Public Use
  Company Number: US200801004199

PATIENT
  Age: 67 Year
  Sex: Female
  Weight: 99.8 kg

DRUGS (21)
  1. BYETTA [Suspect]
     Indication: TYPE 2 DIABETES MELLITUS
     Dosage: 5 UG, 2/D, SUBCUTANEOUS; 10 UG, 2/D, SUBCUTANEOUS
     Route: 058
     Dates: start: 20070201, end: 20070301
  2. BYETTA [Suspect]
     Indication: TYPE 2 DIABETES MELLITUS
     Dosage: 5 UG, 2/D, SUBCUTANEOUS; 10 UG, 2/D, SUBCUTANEOUS
     Route: 058
     Dates: start: 20070301
  3. EXENATIDE 10MCG PEN, DISPOSABLE DEVICE (EXENATIDE PEN (10MCG)) PEN,DIS [Concomitant]
  4. METFORMIN HCL [Concomitant]
  5. RESTASIS (CICLOSPORIN) [Concomitant]
  6. BUMEX [Concomitant]
  7. AGGRENOX [Concomitant]
  8. TOPAMAX [Concomitant]
  9. ZETIA [Concomitant]
  10. TRICOR [Concomitant]
  11. TOPROL-XL [Concomitant]
  12. SOMA [Concomitant]
  13. POTASSIUM CHLORIDE [Concomitant]
  14. ACIPHEX [Concomitant]
  15. AMITRIPTLINE HYDROCHLORIDE TAB [Concomitant]
  16. DARVOCET (DEXTROPROPOXYPHENE NAPSILATE, PARACETAMOL) TABLET [Concomitant]
  17. LEVOTHROID [Concomitant]
  18. ZOLPIDEM TARTRATE [Concomitant]
  19. MULTIVITAMIN (VITAMIN NOS) [Concomitant]
  20. GLUCOSAMINE (GLUCOSAMINE) [Concomitant]
  21. CITRACAL (CALCIUM CITRATE) [Concomitant]

REACTIONS (4)
  - FOOT FRACTURE [None]
  - LOCALISED INFECTION [None]
  - LOWER RESPIRATORY TRACT INFECTION [None]
  - WEIGHT DECREASED [None]
